FAERS Safety Report 6888561-4 (Version None)
Quarter: 2010Q3

REPORT INFORMATION
  Report Type: 
  Country: None (occurrence: None)
  Receive Date: 20100730
  Receipt Date: 20100726
  Transmission Date: 20110219
  Serious: Yes (Other)
  Sender: FDA-Public Use
  Company Number: US-ABBOTT-10P-163-0659260-00

PATIENT
  Age: 36 Year
  Sex: Female

DRUGS (3)
  1. KALETRA [Suspect]
     Indication: PRODUCT USED FOR UNKNOWN INDICATION
     Dosage: 4 DAILY DOSE
     Dates: start: 20090811
  2. COMBIVIR [Suspect]
     Indication: PRODUCT USED FOR UNKNOWN INDICATION
     Dosage: 2 DAILY DOSE
     Route: 048
     Dates: start: 20090811
  3. ATRIPLA [Suspect]
     Indication: PRODUCT USED FOR UNKNOWN INDICATION
     Dosage: 1 DAILY DOSE
     Route: 048
     Dates: start: 20070221, end: 20090706

REACTIONS (1)
  - ABORTION SPONTANEOUS [None]
